FAERS Safety Report 6919736-3 (Version None)
Quarter: 2010Q3

REPORT INFORMATION
  Report Type: 
  Country: None (occurrence: None)
  Receive Date: 20100811
  Receipt Date: 20100728
  Transmission Date: 20110219
  Serious: Yes (Hospitalization)
  Sender: FDA-Public Use
  Company Number: KR-JNJFOC-20100708936

PATIENT
  Sex: Female
  Weight: 65 kg

DRUGS (2)
  1. PALIPERIDONE [Suspect]
     Indication: SCHIZOPHRENIA
     Route: 048
  2. PALIPERIDONE [Suspect]
     Route: 048

REACTIONS (4)
  - COGWHEEL RIGIDITY [None]
  - INTENTIONAL OVERDOSE [None]
  - SEDATION [None]
  - SUICIDAL IDEATION [None]
